FAERS Safety Report 8438917-3 (Version None)
Quarter: 2012Q2

REPORT INFORMATION
  Report Type: 
  Country: None (occurrence: None)
  Receive Date: 20120615
  Receipt Date: 20120613
  Transmission Date: 20120825
  Serious: Yes (Life-Threatening)
  Sender: FDA-Public Use
  Company Number: US-JNJFOC-20120301510

PATIENT
  Sex: Female

DRUGS (4)
  1. PROZAC [Concomitant]
     Indication: DEPRESSION
     Route: 065
  2. NUCYNTA ER [Suspect]
     Indication: PAIN
     Route: 048
     Dates: start: 20120209
  3. NEURONTIN [Concomitant]
     Indication: PAIN
     Route: 065
  4. NUCYNTA ER [Suspect]
     Route: 048
     Dates: start: 20120210

REACTIONS (1)
  - ANAPHYLACTIC REACTION [None]
